FAERS Safety Report 5118529-X (Version None)
Quarter: 2006Q4

REPORT INFORMATION
  Report Type: 
  Country: None (occurrence: None)
  Receive Date: 20061002
  Receipt Date: 20060302
  Transmission Date: 20070319
  Serious: Yes (Other)
  Sender: FDA-Public Use
  Company Number: PHBS2006FI03543

PATIENT
  Age: 1 Day

DRUGS (2)
  1. TRILEPTAL [Suspect]
  2. TRILEPTAL [Suspect]
     Dosage: UNK, UNK
     Route: 064

REACTIONS (4)
  - DRUG EXPOSURE DURING PREGNANCY [None]
  - DRUG EXPOSURE VIA BREAST MILK [None]
  - HYPOTONIA NEONATAL [None]
  - SOMNOLENCE NEONATAL [None]
